FAERS Safety Report 8712825 (Version 3)
Quarter: 2013Q4

REPORT INFORMATION
  Report Type: Report from Study
  Country: JP (occurrence: JP)
  Receive Date: 20120808
  Receipt Date: 20131227
  Transmission Date: 20140711
  Serious: Yes (Hospitalization)
  Sender: FDA-Public Use
  Company Number: JP-VERTEX PHARMACEUTICALS INC.-AE-2012-011366

PATIENT
  Age: 68 Year
  Sex: Male

DRUGS (18)
  1. VX-950 (TELAPREVIR) [Suspect]
     Indication: CHRONIC HEPATITIS C
     Dosage: 2250 MG, QD
     Route: 048
     Dates: start: 20120605, end: 20120612
  2. VX-950 (TELAPREVIR) [Suspect]
     Dosage: 0 MG, QD
     Route: 048
     Dates: start: 20120612, end: 20120619
  3. VX-950 (TELAPREVIR) [Suspect]
     Dosage: 500 MG, QD
     Route: 048
     Dates: start: 20120620, end: 20120724
  4. VX-950 (TELAPREVIR) [Suspect]
     Dosage: 1000 MG, QD
     Route: 048
     Dates: start: 20120725, end: 20120728
  5. RIBAVIRIN [Suspect]
     Indication: CHRONIC HEPATITIS C
     Dosage: 600 MG, QD
     Route: 048
     Dates: start: 20120605, end: 20120619
  6. RIBAVIRIN [Suspect]
     Dosage: 400 MG, QD
     Route: 048
     Dates: start: 20120620
  7. PEGINTERFERON ALFA-2B [Suspect]
     Indication: CHRONIC HEPATITIS C
     Dosage: 80 ?G, QW
     Route: 058
     Dates: start: 20120605, end: 20120611
  8. PEGINTERFERON ALFA-2B [Suspect]
     Dosage: 40 ?G/ BODY/ WEEK
     Route: 058
     Dates: start: 20120612, end: 20120702
  9. PEGINTERFERON ALFA-2B [Suspect]
     Dosage: 50 ?G/ BODY/ WEEK
     Route: 058
     Dates: start: 20120703, end: 20120717
  10. PEGINTERFERON ALFA-2B [Suspect]
     Dosage: 60 ?G/ BODY/ WEEK
     Route: 058
     Dates: start: 20120718
  11. JANUVIA [Concomitant]
     Dosage: 50 MG, QD
     Route: 048
  12. ALLEGRA [Concomitant]
     Dosage: 120 MG, QD
     Route: 048
  13. MARZULENE [Concomitant]
     Dosage: 1.5 G, QD
     Route: 048
  14. PARIET [Concomitant]
     Dosage: 20 MG, QD
     Route: 048
  15. POLARAMINE [Concomitant]
     Dosage: 4 MG, QD
     Route: 048
     Dates: start: 20120609
  16. ANTEBATE [Concomitant]
     Dosage: UNK, PRN
     Route: 061
     Dates: start: 20120609
  17. RESTAMIN [Concomitant]
     Dosage: UNK, PRN
     Route: 061
     Dates: start: 20120731
  18. REZALTAS [Concomitant]
     Dosage: 1 DF, QD
     Route: 048

REACTIONS (1)
  - Toxic skin eruption [Recovered/Resolved]
